FAERS Safety Report 8573714-X (Version None)
Quarter: 2012Q3

REPORT INFORMATION
  Report Type: 
  Country: None (occurrence: None)
  Receive Date: 20120806
  Receipt Date: 20120731
  Transmission Date: 20120928
  Serious: Yes (Other)
  Sender: FDA-Public Use
  Company Number: US-GLAXOSMITHKLINE-A0987709A

PATIENT
  Age: 50 Year
  Sex: Male

DRUGS (8)
  1. ACE INHIBITOR [Concomitant]
  2. STATINS [Concomitant]
  3. FOLIC ACID [Concomitant]
  4. MULTI-VITAMIN [Concomitant]
  5. ASPIRIN [Concomitant]
  6. LOVAZA [Suspect]
     Indication: BLOOD TRIGLYCERIDES INCREASED
     Dosage: 2G TWICE PER DAY
     Route: 048
  7. BETA-BLOCKER [Concomitant]
  8. PLAVIX [Concomitant]

REACTIONS (1)
  - ATRIAL FIBRILLATION [None]
